FAERS Safety Report 24071686 (Version 1)
Quarter: 2024Q3

REPORT INFORMATION
  Report Type: Report from Study
  Country: JP (occurrence: JP)
  Receive Date: 20240710
  Receipt Date: 20240710
  Transmission Date: 20241017
  Serious: No
  Sender: ROCHE
  Company Number: JP-CHUGAI-2022007994

PATIENT
  Age: 23 Year
  Sex: Female
  Weight: 25.8 kg

DRUGS (2)
  1. EVRYSDI [Suspect]
     Active Substance: RISDIPLAM
     Indication: Spinal muscular atrophy
     Dosage: 5 MILLIGRAM, QD
     Route: 065
     Dates: start: 20211224
  2. EVRYSDI [Suspect]
     Active Substance: RISDIPLAM
     Route: 065

REACTIONS (1)
  - Pyrexia [Unknown]
